FAERS Safety Report 13863445 (Version 3)
Quarter: 2018Q1

REPORT INFORMATION
  Report Type: Spontaneous
  Country: US (occurrence: US)
  Receive Date: 20170814
  Receipt Date: 20180131
  Transmission Date: 20180508
  Serious: No
  Sender: FDA-Public Use
  Company Number: US-PFIZER INC-2017345393

PATIENT
  Age: 72 Year
  Sex: Female

DRUGS (5)
  1. IBRANCE [Suspect]
     Active Substance: PALBOCICLIB
     Indication: BREAST CANCER FEMALE
     Dosage: 75 MG, CYCLIC (1 CAPSULE EVERY DAY, 14 DAYS ON AND 14 DAYS OFF)
     Route: 048
  2. LETROZOLE. [Suspect]
     Active Substance: LETROZOLE
     Dosage: 2.5 MG, UNK
  3. IBRANCE [Suspect]
     Active Substance: PALBOCICLIB
     Dosage: 75 MG, CYCLIC (EVERY DAY FOR 14 DAYS ON AND 14 DAYS OFF)
     Route: 048
     Dates: start: 20170728
  4. CEPHALEXIN. [Concomitant]
     Active Substance: CEPHALEXIN
     Dosage: 500 MG, UNK
  5. IBRANCE [Suspect]
     Active Substance: PALBOCICLIB
     Dosage: 75 MG, CYCLIC (TAKE 1 CAPSULE BY MOUTH EVERY DAY FOR 14 DAYS ON AND 14 DAYS OFF)
     Route: 048
     Dates: start: 20170728

REACTIONS (5)
  - Full blood count decreased [Unknown]
  - Localised infection [Recovered/Resolved]
  - Laboratory test abnormal [Unknown]
  - White blood cell count decreased [Unknown]
  - Oral pain [Recovered/Resolved]
